FAERS Safety Report 8522375-4 (Version None)
Quarter: 2012Q3

REPORT INFORMATION
  Report Type: 
  Country: None (occurrence: None)
  Receive Date: 20120719
  Receipt Date: 20120717
  Transmission Date: 20120928
  Serious: No
  Sender: FDA-Public Use
  Company Number: US-PFIZER INC-2012172242

PATIENT
  Sex: Female
  Weight: 68.027 kg

DRUGS (1)
  1. ADVIL [Suspect]
     Indication: NASAL DISCOMFORT
     Dosage: 200 MG, ONCE
     Route: 048
     Dates: start: 20120716, end: 20120717

REACTIONS (3)
  - HYPERTENSION [None]
  - FEELING ABNORMAL [None]
  - HEAD DISCOMFORT [None]
